FAERS Safety Report 6048582-0 (Version None)
Quarter: 2009Q1

REPORT INFORMATION
  Report Type: 
  Country: None (occurrence: None)
  Receive Date: 20090123
  Receipt Date: 20090113
  Transmission Date: 20090719
  Serious: Yes (Hospitalization, Other)
  Sender: FDA-Public Use
  Company Number: SG-PFIZER INC-2009156131

PATIENT

DRUGS (1)
  1. GLIBENCLAMIDE [Suspect]
     Dosage: UNK
     Dates: start: 20080101

REACTIONS (8)
  - ALCOHOL USE [None]
  - BLOOD PRESSURE SYSTOLIC INCREASED [None]
  - COLD SWEAT [None]
  - HYPOGLYCAEMIA [None]
  - LOSS OF CONSCIOUSNESS [None]
  - OVERDOSE [None]
  - PRODUCT TAMPERING [None]
  - SELF-MEDICATION [None]
